FAERS Safety Report 24613591 (Version 1)
Quarter: 2024Q4

REPORT INFORMATION
  Report Type: Spontaneous
  Country: US (occurrence: US)
  Receive Date: 20241113
  Receipt Date: 20241113
  Transmission Date: 20250114
  Serious: No
  Sender: SAREPTA THERAPEUTICS
  Company Number: US-SAREPTA THERAPEUTICS INC.-SRP2024-004713

PATIENT
  Age: 6 Year
  Sex: Male
  Weight: 25.1 kg

DRUGS (10)
  1. ELEVIDYS [Suspect]
     Active Substance: DELANDISTROGENE MOXEPARVOVEC-ROKL
     Indication: Duchenne muscular dystrophy
     Dosage: 240 MILLILITER, SINGLE
     Route: 042
     Dates: start: 20240320, end: 20240320
  2. ZYRTEC [Concomitant]
     Active Substance: CETIRIZINE HYDROCHLORIDE
     Indication: Product used for unknown indication
     Dosage: 5 MILLIGRAM, 5 ML, QD, ALTERNATING WITH CLARITIN EVERY COUPLE OF MONTHS
     Route: 048
  3. VITAMIN D3 [Concomitant]
     Active Substance: CHOLECALCIFEROL
     Indication: Product used for unknown indication
     Dosage: 50 MICROGRAM, BID
     Route: 048
  4. EPIPEN JR [Concomitant]
     Active Substance: EPINEPHRINE
     Indication: Anaphylactic reaction
     Dosage: 0.15 MILLIGRAM, 0.3 ML, PRN FOR UP TO 1 DOSE
     Route: 030
  5. FLONASE [Concomitant]
     Active Substance: FLUTICASONE PROPIONATE
     Indication: Product used for unknown indication
     Dosage: 50 MCG/ACTUATION, 1 SPRAY IN EACH NOSTRIL, QD
     Route: 045
  6. CLARITIN [Concomitant]
     Active Substance: LORATADINE
     Indication: Product used for unknown indication
     Dosage: 10 MILLIGRAM, 10 ML, QD
     Route: 048
  7. FOXIN [OFLOXACIN] [Concomitant]
     Indication: Product used for unknown indication
     Dosage: 0.3 PERCENT, 5 DROPS
     Route: 001
  8. MELATONIN [Concomitant]
     Active Substance: MELATONIN
     Indication: Sleep disorder
     Dosage: 1 EACH, ONCE PER DAY, AS NEEDED MELATONIN/CBD COMBINATION
     Route: 048
  9. VITAMINS [Concomitant]
     Active Substance: VITAMINS
     Indication: Product used for unknown indication
     Dosage: CHEW 1 TABLET, QD
     Route: 048
  10. PRELONE [Concomitant]
     Active Substance: PREDNISOLONE
     Indication: Duchenne muscular dystrophy
     Dosage: 12.9 MILLIGRAM, 4.3 ML, QD
     Route: 048
     Dates: start: 20210928

REACTIONS (1)
  - Gamma-glutamyltransferase increased [Not Recovered/Not Resolved]

NARRATIVE: CASE EVENT DATE: 20240423
